FAERS Safety Report 4735447-7 (Version None)
Quarter: 2005Q3

REPORT INFORMATION
  Report Type: 
  Country: None (occurrence: None)
  Receive Date: 20050805
  Receipt Date: 20050726
  Transmission Date: 20060218
  Serious: Yes (Hospitalization)
  Sender: FDA-Public Use
  Company Number: JP-JNJFOC-20050603212

PATIENT
  Sex: Female
  Weight: 48.5 kg

DRUGS (12)
  1. REMICADE [Suspect]
     Route: 042
  2. REMICADE [Suspect]
     Route: 042
  3. REMICADE [Suspect]
     Route: 042
  4. REMICADE [Suspect]
     Route: 042
  5. REMICADE [Suspect]
     Indication: RHEUMATOID ARTHRITIS
     Route: 042
  6. METHOTREXATE [Concomitant]
  7. METHOTREXATE [Concomitant]
  8. METHOTREXATE [Concomitant]
  9. METHOTREXATE [Concomitant]
  10. METHOTREXATE [Concomitant]
  11. BONALON [Concomitant]
     Route: 048
  12. CALCIUM LACTATE [Concomitant]
     Route: 048

REACTIONS (6)
  - ARTHRALGIA [None]
  - HEADACHE [None]
  - INFUSION RELATED REACTION [None]
  - MALAISE [None]
  - PYREXIA [None]
  - URTICARIA [None]
